FAERS Safety Report 7275994-X (Version None)
Quarter: 2011Q1

REPORT INFORMATION
  Report Type: 
  Country: None (occurrence: None)
  Receive Date: 20110204
  Receipt Date: 20110126
  Transmission Date: 20110831
  Serious: Yes (Other)
  Sender: FDA-Public Use
  Company Number: B0684093A

PATIENT
  Sex: Female

DRUGS (10)
  1. ZANTAC [Suspect]
     Indication: PREMEDICATION
     Route: 042
     Dates: start: 20100825, end: 20101006
  2. CYCLOPHOSPHAMIDE [Concomitant]
     Indication: BREAST CANCER
     Dates: start: 20100101
  3. ZOPHREN [Suspect]
     Indication: PREMEDICATION
     Route: 042
     Dates: start: 20100825, end: 20101006
  4. FLUOROURACIL [Concomitant]
     Indication: BREAST CANCER
     Dates: start: 20100101
  5. ATARAX [Suspect]
     Indication: PREMEDICATION
     Route: 042
     Dates: start: 20100825, end: 20101006
  6. TAXOTERE [Suspect]
     Indication: BREAST CANCER
     Route: 042
     Dates: start: 20100825, end: 20101006
  7. ARANESP [Suspect]
     Route: 058
  8. EPIRUBICIN [Concomitant]
     Indication: BREAST CANCER
     Dates: start: 20100101
  9. DEXAMETHASONE [Suspect]
     Indication: PREMEDICATION
     Route: 042
     Dates: start: 20100825, end: 20101006
  10. TARDYFERON [Suspect]
     Route: 048

REACTIONS (2)
  - PARAESTHESIA [None]
  - MYALGIA [None]
